FAERS Safety Report 20469213 (Version 1)
Quarter: 2022Q1

REPORT INFORMATION
  Report Type: Spontaneous
  Country: US (occurrence: US)
  Receive Date: 20220214
  Receipt Date: 20220214
  Transmission Date: 20220423
  Serious: Yes (Hospitalization, Other)
  Sender: FDA-Public Use
  Company Number: US-GLAXOSMITHKLINE-USCH2022GSK005702

PATIENT
  Age: 39 Year
  Sex: Male

DRUGS (6)
  1. IBUPROFEN [Suspect]
     Active Substance: IBUPROFEN
     Indication: Pyrexia
     Dosage: UNK
  2. IBUPROFEN [Suspect]
     Active Substance: IBUPROFEN
     Indication: Fatigue
  3. IBUPROFEN [Suspect]
     Active Substance: IBUPROFEN
     Indication: Oropharyngeal pain
  4. IBUPROFEN [Suspect]
     Active Substance: IBUPROFEN
     Indication: Malaise
  5. OXYCODONE [Concomitant]
     Active Substance: OXYCODONE
     Indication: Product used for unknown indication
     Dosage: UNK
  6. PREDNISONE [Concomitant]
     Active Substance: PREDNISONE
     Indication: Product used for unknown indication
     Dosage: UNK

REACTIONS (22)
  - Erythema multiforme [Recovering/Resolving]
  - Cheilitis [Recovering/Resolving]
  - Stomatitis [Recovering/Resolving]
  - Lacrimation increased [Not Recovered/Not Resolved]
  - Skin lesion [Recovering/Resolving]
  - Rash papular [Recovering/Resolving]
  - Hypophagia [Unknown]
  - Conjunctivitis [Unknown]
  - Conjunctival oedema [Unknown]
  - Scleral hyperaemia [Unknown]
  - Dry mouth [Unknown]
  - Lip exfoliation [Unknown]
  - Dysuria [Unknown]
  - Eyelid oedema [Unknown]
  - Conjunctival hyperaemia [Not Recovered/Not Resolved]
  - Skin exfoliation [Not Recovered/Not Resolved]
  - Trichiasis [Not Recovered/Not Resolved]
  - Onychoclasis [Not Recovered/Not Resolved]
  - Skin hyperpigmentation [Not Recovered/Not Resolved]
  - Tongue disorder [Not Recovered/Not Resolved]
  - Urinary tract discomfort [Unknown]
  - Symblepharon [Not Recovered/Not Resolved]
